FAERS Safety Report 23712203 (Version 1)
Quarter: 2024Q2

REPORT INFORMATION
  Report Type: Report from Study
  Country: US (occurrence: None)
  Receive Date: 20240405
  Receipt Date: 20240405
  Transmission Date: 20240716
  Serious: Yes (Other)
  Sender: FDA-Public Use
  Company Number: 2024A076881

PATIENT
  Sex: Female

DRUGS (1)
  1. BREZTRI [Suspect]
     Active Substance: BUDESONIDE\FORMOTEROL\GLYCOPYRROLATE
     Route: 055

REACTIONS (7)
  - Cardiac flutter [Unknown]
  - Dyspnoea [Unknown]
  - Thirst [Unknown]
  - Lip dry [Unknown]
  - Wheezing [Unknown]
  - Insomnia [Unknown]
  - Peripheral swelling [Unknown]
